FAERS Safety Report 4445065-6 (Version None)
Quarter: 2004Q3

REPORT INFORMATION
  Report Type: 
  Country: None (occurrence: None)
  Receive Date: 20040907
  Receipt Date: 20040824
  Transmission Date: 20050211
  Serious: Yes (Hospitalization)
  Sender: FDA-Public Use
  Company Number: 2004059392

PATIENT
  Age: 21 Year
  Sex: Female

DRUGS (5)
  1. ZITHROMAX [Suspect]
     Indication: BRONCHITIS ACUTE
     Dosage: 500 MG (1 IN 1 D), ORAL
     Route: 048
     Dates: start: 20040819, end: 20040801
  2. DEXAMETHASONE [Concomitant]
  3. AMINOPHYLLINE [Concomitant]
  4. BUDENOSIDE [Concomitant]
  5. TULOBUTEROL HYDROCHLORIDE [Concomitant]

REACTIONS (7)
  - DRUG ERUPTION [None]
  - DYSPNOEA [None]
  - INSOMNIA [None]
  - LARYNGEAL OEDEMA [None]
  - OXYGEN SATURATION DECREASED [None]
  - RASH GENERALISED [None]
  - URTICARIA [None]
